FAERS Safety Report 15699452 (Version 1)
Quarter: 2018Q4

REPORT INFORMATION
  Report Type: Spontaneous
  Country: IN (occurrence: IN)
  Receive Date: 20181207
  Receipt Date: 20181207
  Transmission Date: 20190205
  Serious: Yes (Other)
  Sender: FDA-Public Use
  Company Number: PHHY2018IN171934

PATIENT
  Age: 25 Year
  Sex: Male

DRUGS (1)
  1. PAZOPANIB [Suspect]
     Active Substance: PAZOPANIB
     Indication: SPINDLE CELL SARCOMA
     Dosage: 800 MG, QD
     Route: 065
     Dates: start: 201512

REACTIONS (4)
  - Skin hypopigmentation [Recovering/Resolving]
  - Spindle cell sarcoma [Unknown]
  - Malignant neoplasm progression [Unknown]
  - Hair colour changes [Recovering/Resolving]
